FAERS Safety Report 10861190 (Version 1)
Quarter: 2015Q1

REPORT INFORMATION
  Report Type: Spontaneous
  Country: US (occurrence: None)
  Receive Date: 20150218
  Receipt Date: 20150218
  Transmission Date: 20150721
  Serious: Yes (Life-Threatening, Hospitalization)
  Sender: FDA-Public Use
  Company Number: None

PATIENT
  Age: 77 Year
  Sex: Female
  Weight: 108 kg

DRUGS (20)
  1. LANTUS [Suspect]
     Active Substance: INSULIN GLARGINE
     Indication: DIABETES MELLITUS
     Dosage: 40 UNITS
     Route: 058
  2. PLAVIX [Concomitant]
     Active Substance: CLOPIDOGREL BISULFATE
  3. TRAZODONE (DESYREL) [Concomitant]
  4. TYLENOL [Concomitant]
     Active Substance: ACETAMINOPHEN
  5. MAGNESIUM HYDROXIDE. [Concomitant]
     Active Substance: MAGNESIUM HYDROXIDE
  6. LEVOTHYROXINE (SYNTHROID, LEVOTHROID) [Concomitant]
  7. POTASSIUM CHLORIDE (KLOR-CON) [Concomitant]
  8. BISACODYL (DULCOLAX) [Concomitant]
  9. TRAMADOL (ULTRAM) [Concomitant]
  10. SPIRONOLACTONE (ALDACTONE) [Concomitant]
  11. LORATADINE (CLARITIN) [Concomitant]
  12. DEXTROSE (GLUTOSE) [Concomitant]
  13. ALBUTEROL (VENTOLIN) [Concomitant]
  14. AMLODIPINE (NORVASC) [Concomitant]
  15. HYDROCODONE-ACETAMINOPHEN (NORCO) [Concomitant]
  16. CYANOCOBALAMIN. [Concomitant]
     Active Substance: CYANOCOBALAMIN
  17. LIDOCAINE (LIDODERM) [Concomitant]
  18. CALCIUM CARBONATE (TUMS) [Concomitant]
  19. GLUCAGON (GLUCAGON EMERGENCY) [Concomitant]
  20. PANTOPRAZOLE (PROTONIX) [Concomitant]

REACTIONS (6)
  - Tremor [None]
  - Blood glucose increased [None]
  - Fall [None]
  - Feeling jittery [None]
  - Hypoglycaemic seizure [None]
  - Foaming at mouth [None]

NARRATIVE: CASE EVENT DATE: 20131219
